FAERS Safety Report 9918305 (Version 4)
Quarter: 2014Q3

REPORT INFORMATION
  Report Type: Spontaneous
  Country: FR (occurrence: FR)
  Receive Date: 20140224
  Receipt Date: 20140707
  Transmission Date: 20150326
  Serious: Yes (Hospitalization, Other)
  Sender: FDA-Public Use
  Company Number: FR-PFIZER INC-2014047245

PATIENT
  Age: 31 Year
  Sex: Female

DRUGS (2)
  1. ADVIL [Suspect]
     Active Substance: IBUPROFEN
     Dosage: 2 DF, UNK
     Dates: start: 201312
  2. SPIFEN [Suspect]
     Active Substance: IBUPROFEN
     Dosage: 4 DF, UNK
     Dates: start: 201312

REACTIONS (16)
  - General physical health deterioration [Unknown]
  - Placental insufficiency [Unknown]
  - Umbilical cord vascular disorder [Recovered/Resolved]
  - Thrombocytopenia [Unknown]
  - Oedema peripheral [Unknown]
  - Cytomegalovirus test positive [Unknown]
  - Pyelonephritis acute [Unknown]
  - Aplastic anaemia [Unknown]
  - Placental infarction [Unknown]
  - Escherichia sepsis [Unknown]
  - Dysphagia [Unknown]
  - Oligohydramnios [Recovered/Resolved]
  - Bicytopenia [Unknown]
  - Aphagia [Unknown]
  - Cough [Unknown]
  - Pyrexia [Unknown]

NARRATIVE: CASE EVENT DATE: 201312
